FAERS Safety Report 9940468 (Version 4)
Quarter: 2014Q1

REPORT INFORMATION
  Report Type: Spontaneous
  Country: NL (occurrence: NL)
  Receive Date: 20140303
  Receipt Date: 20140324
  Transmission Date: 20141002
  Serious: Yes (Hospitalization)
  Sender: FDA-Public Use
  Company Number: NL-PFIZER INC-2014053697

PATIENT
  Age: 43 Year
  Sex: Female
  Weight: 61 kg

DRUGS (8)
  1. REVATIO [Suspect]
     Indication: PULMONARY ARTERIAL HYPERTENSION
     Dosage: 20 MG, 3X/DAY
     Dates: start: 2011
  2. REVATIO [Suspect]
     Indication: CONGENITAL CARDIOVASCULAR ANOMALY
     Dosage: 40 MG, 3X/DAY
  3. BOSENTAN [Concomitant]
     Indication: PULMONARY ARTERIAL HYPERTENSION
     Dosage: 125 MG, 2X/DAY
  4. EUTHYROX [Concomitant]
     Dosage: 125 UG, 1X/DAY
  5. BUMETANIDE [Concomitant]
     Dosage: 15 MG, 2X/DAY
  6. HYDROCHLOROTHIAZIDE [Concomitant]
     Dosage: 25 MG, 1X/DAY
  7. ACENOCOUMAROL [Concomitant]
  8. ALDACTONE [Concomitant]
     Dosage: 50 MG, 2X/DAY

REACTIONS (1)
  - Cardiac failure [Recovering/Resolving]
